FAERS Safety Report 10812891 (Version 1)
Quarter: 2015Q1

REPORT INFORMATION
  Report Type: Report from Study
  Country: US (occurrence: US)
  Receive Date: 20150218
  Receipt Date: 20150218
  Transmission Date: 20150721
  Serious: No
  Sender: FDA-Public Use
  Company Number: US-ABBVIE-14K-163-1272359-00

PATIENT
  Age: 38 Year
  Sex: Female

DRUGS (4)
  1. HUMIRA [Suspect]
     Active Substance: ADALIMUMAB
     Dates: start: 20140804, end: 20140805
  2. HUMIRA [Suspect]
     Active Substance: ADALIMUMAB
     Indication: PSORIASIS
     Dates: start: 20140711, end: 20140711
  3. HUMIRA [Suspect]
     Active Substance: ADALIMUMAB
     Dates: start: 20140724, end: 20140724
  4. EPSOM SALT [Suspect]
     Active Substance: MAGNESIUM SULFATE
     Indication: ANTIBIOTIC PROPHYLAXIS
     Dosage: TOOK BATH WITH BLEACH AND EPSOM SALTS
     Dates: start: 20140806, end: 20140807

REACTIONS (5)
  - Rash generalised [Not Recovered/Not Resolved]
  - Enterococcal infection [Not Recovered/Not Resolved]
  - Rash [Not Recovered/Not Resolved]
  - Drug dose omission [Unknown]
  - Rash pustular [Not Recovered/Not Resolved]

NARRATIVE: CASE EVENT DATE: 20140711
